FAERS Safety Report 8808458 (Version 1)
Quarter: 2012Q4

REPORT INFORMATION
  Report Type: Spontaneous
  Country: US (occurrence: None)
  Receive Date: 20120920
  Receipt Date: 20120920
  Transmission Date: 20130627
  Serious: No
  Sender: FDA-Public Use
  Company Number: None

PATIENT

DRUGS (2)
  1. HEPARIN LOCK FLUSH [Suspect]
  2. CEFOTETAN DISODIUM [Suspect]
     Route: 030

REACTIONS (2)
  - Product label issue [None]
  - Product packaging issue [None]
